FAERS Safety Report 23047549 (Version 2)
Quarter: 2024Q4

REPORT INFORMATION
  Report Type: Spontaneous
  Country: US (occurrence: US)
  Receive Date: 20231010
  Receipt Date: 20241016
  Transmission Date: 20250115
  Serious: No
  Sender: CELLTRION
  Company Number: US-CELLTRION INC.-2023US015313

PATIENT

DRUGS (3)
  1. INFLECTRA [Suspect]
     Active Substance: INFLIXIMAB-DYYB
     Indication: Crohn^s disease
     Dosage: UNK, 100MG VIAL
     Route: 065
     Dates: start: 20230203, end: 20230203
  2. INFLECTRA [Suspect]
     Active Substance: INFLIXIMAB-DYYB
     Dosage: UNK, 100MG VIAL
     Route: 065
     Dates: start: 20230410, end: 20230410
  3. INFLECTRA [Suspect]
     Active Substance: INFLIXIMAB-DYYB
     Dosage: UNK, 100MG VIAL
     Route: 065
     Dates: start: 20230731, end: 20230731

REACTIONS (1)
  - Intentional product use issue [Unknown]
